FAERS Safety Report 8872617 (Version 1)
Quarter: 2012Q4

REPORT INFORMATION
  Report Type: Spontaneous
  Country: US (occurrence: None)
  Receive Date: 20121031
  Receipt Date: 20121031
  Transmission Date: 20130627
  Serious: No
  Sender: FDA-Public Use
  Company Number: None

PATIENT
  Sex: Female
  Weight: 86.18 kg

DRUGS (1)
  1. KETOROLAC [Suspect]

REACTIONS (5)
  - Back pain [None]
  - Ovarian disorder [None]
  - Respiratory disorder [None]
  - Laryngitis [None]
  - Headache [None]
